FAERS Safety Report 24203497 (Version 1)
Quarter: 2024Q3

REPORT INFORMATION
  Report Type: Spontaneous
  Country: PL (occurrence: PL)
  Receive Date: 20240813
  Receipt Date: 20240813
  Transmission Date: 20241017
  Serious: Yes (Life-Threatening)
  Sender: CHEPLAPHARM
  Company Number: None

PATIENT
  Age: 31 Year
  Sex: Male
  Weight: 93 kg

DRUGS (3)
  1. OLANZAPINE [Interacting]
     Active Substance: OLANZAPINE
     Indication: Suspected suicide attempt
     Dosage: TIME OF USE UNKNOWN, 70 MG OLANZAPINE
     Route: 048
  2. VALERIAN [Interacting]
     Active Substance: VALERIAN
     Indication: Suspected suicide attempt
     Dosage: TIME OF USE UNKNOWN
     Route: 048
  3. ALCOHOL [Interacting]
     Active Substance: ALCOHOL
     Indication: Suspected suicide attempt

REACTIONS (5)
  - Cognitive disorder [Recovered/Resolved]
  - Confusional state [Recovered/Resolved]
  - Somnolence [Recovered/Resolved]
  - Hyporesponsive to stimuli [Recovered/Resolved]
  - Toxicity to various agents [Recovered/Resolved]

NARRATIVE: CASE EVENT DATE: 20200412
